FAERS Safety Report 10173947 (Version 1)
Quarter: 2014Q2

REPORT INFORMATION
  Report Type: Spontaneous
  Country: US (occurrence: None)
  Receive Date: 20140514
  Receipt Date: 20140514
  Transmission Date: 20141212
  Serious: No
  Sender: FDA-Public Use
  Company Number: None

PATIENT
  Age: 36 Year
  Sex: Female

DRUGS (15)
  1. INSULIN ASPART [Suspect]
     Indication: HYPERGLYCAEMIA
     Dosage: 10 UNITS, WITH MEALS AND, SC
     Route: 058
     Dates: start: 20140312
  2. ACETAMINOPHEN [Concomitant]
  3. AZITHROMYCIN [Concomitant]
  4. BENZONATATE [Concomitant]
  5. CALCIUM + VITAMIN D [Concomitant]
  6. CETIRIZINE [Concomitant]
  7. CLONAZEPAM [Concomitant]
  8. DOCUSATE [Concomitant]
  9. FERROUS SULFATE [Concomitant]
  10. MAGNESIUM OXIDE? [Concomitant]
  11. OXYCODONE-ACETAMINOPHEN [Concomitant]
  12. PREDNISONE [Concomitant]
  13. RANITIDINE [Concomitant]
  14. SULFAMETHOXAZOLE-TRIMETHOPRIM [Concomitant]
  15. TACROLIMUS [Concomitant]

REACTIONS (2)
  - Blood glucose decreased [None]
  - Blood glucose increased [None]
